FAERS Safety Report 22634430 (Version 1)
Quarter: 2023Q2

REPORT INFORMATION
  Report Type: Spontaneous
  Country: US (occurrence: None)
  Receive Date: 20230622
  Receipt Date: 20230622
  Transmission Date: 20230721
  Serious: Yes (Other)
  Sender: FDA-Public Use
  Company Number: None

PATIENT
  Age: 91 Year
  Sex: Male
  Weight: 71.1 kg

DRUGS (7)
  1. POMALYST [Suspect]
     Active Substance: POMALIDOMIDE
     Indication: Plasma cell myeloma
     Dosage: FREQUENCY : DAILY;?
     Route: 048
     Dates: start: 20230407, end: 20230612
  2. REVLIMID [Suspect]
     Active Substance: LENALIDOMIDE
  3. LENALIDOMIDE [Concomitant]
     Active Substance: LENALIDOMIDE
     Dates: start: 20180815, end: 20230322
  4. DEXAMETHASONE [Concomitant]
     Active Substance: DEXAMETHASONE
     Dates: start: 20180815
  5. ZOMETA [Concomitant]
     Active Substance: ZOLEDRONIC ACID
     Dates: start: 20180926
  6. ASPIRIN [Concomitant]
     Active Substance: ASPIRIN
     Dates: end: 20230524
  7. ELIQUIS [Concomitant]
     Active Substance: APIXABAN
     Dates: start: 20230501

REACTIONS (2)
  - Rash [None]
  - Renal impairment [None]

NARRATIVE: CASE EVENT DATE: 20230612
